FAERS Safety Report 12349754 (Version 2)
Quarter: 2017Q3

REPORT INFORMATION
  Report Type: Spontaneous
  Country: GB (occurrence: GB)
  Receive Date: 20160510
  Receipt Date: 20170704
  Transmission Date: 20171127
  Serious: Yes (Other)
  Sender: FDA-Public Use
  Company Number: GB-SUN PHARMACEUTICAL INDUSTRIES LTD-2016R1-116000

PATIENT
  Age: 22 Year
  Sex: Female
  Weight: 37.5 kg

DRUGS (4)
  1. SPIRONOLACTONE. [Suspect]
     Active Substance: SPIRONOLACTONE
     Indication: GITELMAN^S SYNDROME
     Dosage: UNK
     Route: 065
  2. SPIRONOLACTONE. [Suspect]
     Active Substance: SPIRONOLACTONE
     Indication: HYPOKALAEMIA
  3. AMILORIDE [Suspect]
     Active Substance: AMILORIDE
     Indication: HYPOKALAEMIA
  4. AMILORIDE [Suspect]
     Active Substance: AMILORIDE
     Indication: GITELMAN^S SYNDROME
     Dosage: UNK
     Route: 065

REACTIONS (1)
  - Hypotension [Recovering/Resolving]
